FAERS Safety Report 14565880 (Version 1)
Quarter: 2018Q1

REPORT INFORMATION
  Report Type: Spontaneous
  Country: US (occurrence: US)
  Receive Date: 20180222
  Receipt Date: 20180222
  Transmission Date: 20180509
  Serious: No
  Sender: FDA-Public Use
  Company Number: None

PATIENT
  Age: 51 Year
  Sex: Female

DRUGS (1)
  1. GATTEX [Suspect]
     Active Substance: TEDUGLUTIDE\WATER
     Indication: SHORT-BOWEL SYNDROME
     Route: 058
     Dates: start: 20180216

REACTIONS (7)
  - Injection site bruising [None]
  - Drug dose omission [None]
  - Bone pain [None]
  - Abdominal pain [None]
  - Abdominal distension [None]
  - Muscle spasms [None]
  - Peripheral swelling [None]
